FAERS Safety Report 7726133-X (Version None)
Quarter: 2011Q3

REPORT INFORMATION
  Report Type: 
  Country: None (occurrence: None)
  Receive Date: 20110902
  Receipt Date: 20110825
  Transmission Date: 20111222
  Serious: Yes (Death)
  Sender: FDA-Public Use
  Company Number: GXBR2011US04616

PATIENT
  Sex: Male

DRUGS (2)
  1. CHEMOTHERAPEUTICS [Suspect]
     Dosage: UNK DF, UNK
  2. ENOXAPARIN SODIUM [Suspect]
     Dosage: UNK MG, UNK

REACTIONS (1)
  - DEATH [None]
